FAERS Safety Report 8875329 (Version 1)
Quarter: 2012Q4

REPORT INFORMATION
  Report Type: 
  Country: US (occurrence: US)
  Receive Date: 20121023
  Receipt Date: 20121023
  Transmission Date: 20130627
  Serious: Yes (Death)
  Sender: FDA-Public Use
  Company Number: US-ROXANE LABORATORIES, INC.-2012-EU-04762GD

PATIENT
  Age: 50 Year

DRUGS (3)
  1. SERTRALINE [Suspect]
     Route: 048
  2. PARACETAMOL + DIPHENHYDRAMINE [Suspect]
     Route: 048
  3. DIPHENHYDRAMINE [Suspect]
     Route: 048

REACTIONS (3)
  - Completed suicide [Fatal]
  - Cardiac arrest [None]
  - Respiratory arrest [None]
